FAERS Safety Report 7556566-6 (Version None)
Quarter: 2011Q2

REPORT INFORMATION
  Report Type: 
  Country: None (occurrence: None)
  Receive Date: 20110620
  Receipt Date: 20110608
  Transmission Date: 20111010
  Serious: Yes (Hospitalization)
  Sender: FDA-Public Use
  Company Number: US-ELI_LILLY_AND_COMPANY-US200907001861

PATIENT
  Sex: Female

DRUGS (2)
  1. FORTEO [Suspect]
     Indication: OSTEOPOROSIS
     Dosage: UNK
  2. FORTEO [Suspect]
     Dosage: UNK
     Dates: end: 20110301

REACTIONS (3)
  - ANKLE FRACTURE [None]
  - INJURY ASSOCIATED WITH DEVICE [None]
  - HOSPITALISATION [None]
